FAERS Safety Report 8222924-X (Version None)
Quarter: 2012Q1

REPORT INFORMATION
  Report Type: 
  Country: None (occurrence: None)
  Receive Date: 20120320
  Receipt Date: 20120314
  Transmission Date: 20120608
  Serious: Yes (Hospitalization, Other)
  Sender: FDA-Public Use
  Company Number: US-FRI-1000029099

PATIENT
  Sex: Female

DRUGS (1)
  1. BYSTOLIC [Suspect]
     Indication: HYPERTENSION
     Dates: start: 20100801, end: 20120201

REACTIONS (5)
  - LOSS OF CONSCIOUSNESS [None]
  - CARDIAC ARREST [None]
  - DEPRESSION [None]
  - RESPIRATORY ARREST [None]
  - HEART RATE DECREASED [None]
